FAERS Safety Report 18719364 (Version 7)
Quarter: 2022Q4

REPORT INFORMATION
  Report Type: Spontaneous
  Country: CA (occurrence: CA)
  Receive Date: 20210108
  Receipt Date: 20221110
  Transmission Date: 20230112
  Serious: Yes (Hospitalization, Other)
  Sender: FDA-Public Use
  Company Number: CA-PFIZER INC-2020429265

PATIENT
  Age: 68 Year
  Sex: Female

DRUGS (27)
  1. XELJANZ [Suspect]
     Active Substance: TOFACITINIB CITRATE
     Indication: Rheumatoid arthritis
     Dosage: 5 MG, 2X/DAY
     Route: 048
     Dates: start: 20201019, end: 20201223
  2. XELJANZ [Suspect]
     Active Substance: TOFACITINIB CITRATE
     Indication: Polyarthritis
     Dosage: 5 MG, 2X/DAY
     Route: 048
     Dates: start: 20201019, end: 202101
  3. XELJANZ [Suspect]
     Active Substance: TOFACITINIB CITRATE
     Dosage: 5 MG, 2X/DAY
     Route: 048
     Dates: start: 20210128
  4. ACETAMINOPHEN [Concomitant]
     Active Substance: ACETAMINOPHEN
     Indication: Rheumatoid arthritis
     Dosage: 1000 MG, 4X/DAY
  5. ASPIRIN [Concomitant]
     Active Substance: ASPIRIN
     Indication: Hypertension
     Dosage: 8 MG, 1X/DAY
  6. ASPIRIN [Concomitant]
     Active Substance: ASPIRIN
     Indication: Tachycardia
  7. CORTEF [Concomitant]
     Active Substance: HYDROCORTISONE
     Indication: Lymphoma
     Dosage: 5 MG, 1X/DAY
  8. CARDIZEM [Concomitant]
     Active Substance: DILTIAZEM HYDROCHLORIDE
     Indication: Tachycardia
     Dosage: 300 MG, 2X/DAY
  9. CARDIZEM [Concomitant]
     Active Substance: DILTIAZEM HYDROCHLORIDE
     Indication: Hypertension
  10. FENTANYL [Concomitant]
     Active Substance: FENTANYL
  11. FOLIC ACID [Concomitant]
     Active Substance: FOLIC ACID
  12. HUMIRA [Concomitant]
     Active Substance: ADALIMUMAB
     Dosage: 1 DFDOSAGE UNKNOWN
  13. LEVOTHYROXINE [Concomitant]
     Active Substance: LEVOTHYROXINE
  14. METFORMIN [Concomitant]
     Active Substance: METFORMIN HYDROCHLORIDE
     Indication: Type 2 diabetes mellitus
     Dosage: 850 MG, 2X/DAY
  15. METHOTREXATE [Concomitant]
     Active Substance: METHOTREXATE
     Indication: Rheumatoid arthritis
     Dosage: 20 MG, ONCE WEEKLY
     Route: 058
     Dates: start: 201612, end: 201801
  16. METHOTREXATE [Concomitant]
     Active Substance: METHOTREXATE
     Dosage: 20 MG EVERY 2 WEEKS
     Route: 058
     Dates: start: 202005
  17. METHOTREXATE [Concomitant]
     Active Substance: METHOTREXATE
     Dosage: 20 MG, ONCE WEEKLY
     Route: 058
     Dates: start: 202010
  18. MONTELUKAST [Concomitant]
     Active Substance: MONTELUKAST SODIUM
  19. NAPROXEN [Concomitant]
     Active Substance: NAPROXEN
     Dosage: UNK, AS NEEDED
  20. PANTOPRAZOLE [Concomitant]
     Active Substance: PANTOPRAZOLE
  21. PERINDOPRIL [Concomitant]
     Active Substance: PERINDOPRIL
     Indication: Hypertension
  22. PERINDOPRIL [Concomitant]
     Active Substance: PERINDOPRIL
     Indication: Tachycardia
  23. PULMICORT TURBUHALER [Concomitant]
     Active Substance: BUDESONIDE
     Indication: Asthma
     Dosage: UNK, 1X/DAY
  24. SYMBICORT [Concomitant]
     Active Substance: BUDESONIDE\FORMOTEROL FUMARATE DIHYDRATE
  25. CHOLECALCIFEROL [Concomitant]
     Active Substance: CHOLECALCIFEROL
  26. VENTOLIN [Concomitant]
     Active Substance: ALBUTEROL SULFATE
     Indication: Asthma
     Dosage: UNK UNK, AS NEEDED
  27. XOLAIR [Concomitant]
     Active Substance: OMALIZUMAB
     Indication: Asthma
     Dosage: ONCE MONTHLY

REACTIONS (12)
  - Colitis [Recovered/Resolved]
  - Diverticulitis [Recovered/Resolved]
  - Spinal fracture [Unknown]
  - Knee operation [Unknown]
  - Therapeutic product effect incomplete [Unknown]
  - Abdominal pain [Unknown]
  - Abdominal discomfort [Recovered/Resolved]
  - COVID-19 [Unknown]
  - Infection [Unknown]
  - Arthralgia [Not Recovered/Not Resolved]
  - Sensitivity to weather change [Unknown]
  - Condition aggravated [Recovering/Resolving]

NARRATIVE: CASE EVENT DATE: 20201001
